FAERS Safety Report 24971329 (Version 1)
Quarter: 2025Q1

REPORT INFORMATION
  Report Type: Spontaneous
  Country: US (occurrence: None)
  Receive Date: 20250214
  Receipt Date: 20250214
  Transmission Date: 20250409
  Serious: No
  Sender: FDA-CTU
  Company Number: None

PATIENT
  Age: 66 Year
  Sex: Male

DRUGS (1)
  1. PIRFENIDONE [Suspect]
     Active Substance: PIRFENIDONE
     Indication: Idiopathic pulmonary fibrosis
     Dosage: FREQUENCY : TWICE A DAY;?
     Route: 048
     Dates: start: 20240711, end: 20250127

REACTIONS (12)
  - Rash [None]
  - Pruritus [None]
  - Ear congestion [None]
  - Ear discomfort [None]
  - Asthenia [None]
  - Laziness [None]
  - Decreased appetite [None]
  - Sneezing [None]
  - Nasal congestion [None]
  - Rhinorrhoea [None]
  - Insomnia [None]
  - Therapy cessation [None]

NARRATIVE: CASE EVENT DATE: 20250127
